FAERS Safety Report 13983331 (Version 1)
Quarter: 2017Q3

REPORT INFORMATION
  Report Type: Spontaneous
  Country: DE (occurrence: DE)
  Receive Date: 20170918
  Receipt Date: 20170918
  Transmission Date: 20171128
  Serious: Yes (Other)
  Sender: FDA-Public Use
  Company Number: GXKR2017DE004593

PATIENT
  Sex: Female
  Weight: 48 kg

DRUGS (1)
  1. ACETYLSALICYLIC ACID [Suspect]
     Active Substance: ASPIRIN
     Indication: PRODUCT USED FOR UNKNOWN INDICATION
     Dosage: UNK
     Route: 065
     Dates: start: 2000

REACTIONS (4)
  - Deep vein thrombosis [Unknown]
  - Peripheral swelling [Unknown]
  - Thrombophlebitis [Unknown]
  - Feeling hot [Unknown]

NARRATIVE: CASE EVENT DATE: 20170825
